FAERS Safety Report 8583525-7 (Version None)
Quarter: 2012Q3

REPORT INFORMATION
  Report Type: 
  Country: None (occurrence: None)
  Receive Date: 20120809
  Receipt Date: 20120806
  Transmission Date: 20120928
  Serious: Yes (Other)
  Sender: FDA-Public Use
  Company Number: GXKR2012DE002508

PATIENT

DRUGS (1)
  1. ALLOPURINOL [Suspect]
     Indication: NEPHROLITHIASIS
     Dosage: 100 MG, UNK
     Route: 048
     Dates: start: 19800101

REACTIONS (1)
  - AGE-RELATED MACULAR DEGENERATION [None]
